FAERS Safety Report 13224656 (Version 1)
Quarter: 2017Q1

REPORT INFORMATION
  Report Type: Report from Study
  Country: NG (occurrence: NG)
  Receive Date: 20170213
  Receipt Date: 20170213
  Transmission Date: 20170428
  Serious: Yes (Death)
  Sender: FDA-Public Use
  Company Number: NG-CIPLA LTD.-2017NG01695

PATIENT

DRUGS (3)
  1. FOLIC ACID. [Suspect]
     Active Substance: FOLIC ACID
     Indication: SICKLE CELL ANAEMIA
     Dosage: UNK, DAILY
     Route: 065
  2. VITAMIN C [Suspect]
     Active Substance: ASCORBIC ACID
     Indication: SICKLE CELL ANAEMIA
     Dosage: UNK, DAILY
     Route: 065
  3. ARTESUNATE-MEFLOQUINE [Suspect]
     Active Substance: ARTESUNATE\MEFLOQUINE
     Indication: MALARIA PROPHYLAXIS
     Dosage: UNK, BIMONTHLY, 3 DAYS
     Route: 065

REACTIONS (1)
  - Cerebrovascular accident [Fatal]
